FAERS Safety Report 24874313 (Version 2)
Quarter: 2025Q4

REPORT INFORMATION
  Report Type: Report from Study
  Country: US (occurrence: US)
  Receive Date: 20250122
  Receipt Date: 20251231
  Transmission Date: 20260117
  Serious: No
  Sender: PFIZER
  Company Number: US-PFIZER INC-202500014119

PATIENT
  Age: 75 Year
  Sex: Female

DRUGS (2)
  1. IBRANCE [Suspect]
     Active Substance: PALBOCICLIB
     Dosage: 125 MG, CYCLIC (1 TABLET BY MOUTH DAILY FOR 21 DAYS AND 7 DAYS OFF)
     Route: 048
     Dates: start: 20240118
  2. IBRANCE [Suspect]
     Active Substance: PALBOCICLIB
     Dosage: 125 MG, CYCLIC (TAKE 1 TABLET EVERY DAY FOR 21 DAYS THEN 7 DAYS OFF)
     Route: 048

REACTIONS (1)
  - Dental care [Unknown]
